FAERS Safety Report 4286572-9 (Version None)
Quarter: 2004Q1

REPORT INFORMATION
  Report Type: 
  Country: None (occurrence: None)
  Receive Date: 20040204
  Receipt Date: 20040120
  Transmission Date: 20041129
  Serious: Yes (Hospitalization)
  Sender: FDA-Public Use
  Company Number: 2004IM000078

PATIENT
  Age: 21 Year
  Sex: Female
  Weight: 53.5244 kg

DRUGS (11)
  1. INFERGEN [Suspect]
     Indication: HEPATITIS C
     Dosage: 12 MU; TIW; SUBCUTANEOUS
     Route: 058
     Dates: start: 20031105, end: 20040101
  2. RIBAVIRIN [Suspect]
     Indication: HEPATITIS
     Dosage: 800 MG; OD; ORAL
     Route: 048
     Dates: start: 20031105, end: 20040101
  3. PROCRIT [Concomitant]
  4. ALEESE [Concomitant]
  5. TYLENOL PM [Concomitant]
  6. VITAMIN C [Concomitant]
  7. VITAMIN E [Concomitant]
  8. ST MARY'S THISTLE [Concomitant]
  9. ADVIL [Concomitant]
  10. PROTONIX [Concomitant]
  11. MULTI-VITAMINS [Concomitant]

REACTIONS (16)
  - ANXIETY [None]
  - COMPLETED SUICIDE [None]
  - DEPRESSION [None]
  - DRUG ABUSER [None]
  - DRUG DEPENDENCE [None]
  - DRUG INEFFECTIVE [None]
  - DRUG SCREEN POSITIVE [None]
  - GUN SHOT WOUND [None]
  - HYPOAESTHESIA [None]
  - LOSS OF CONSCIOUSNESS [None]
  - MUSCLE SPASMS [None]
  - PAIN [None]
  - PARAESTHESIA [None]
  - PERSONALITY DISORDER [None]
  - TEMPERATURE INTOLERANCE [None]
  - WEIGHT DECREASED [None]
